FAERS Safety Report 9610311 (Version 2)
Quarter: 2013Q4

REPORT INFORMATION
  Report Type: Spontaneous
  Country: US (occurrence: US)
  Receive Date: 20131009
  Receipt Date: 20131014
  Transmission Date: 20140711
  Serious: Yes (Other)
  Sender: FDA-Public Use
  Company Number: US-BAYER-2013-121474

PATIENT
  Age: 15 Year
  Sex: Male

DRUGS (2)
  1. GADAVIST [Suspect]
     Indication: ARTHROGRAM
     Dosage: 10 ML, ONCE
     Route: 042
     Dates: start: 20131001, end: 20131001
  2. GADAVIST [Suspect]
     Indication: JOINT INJURY

REACTIONS (8)
  - Hyperhidrosis [Recovered/Resolved]
  - Tachycardia [Recovered/Resolved]
  - Nausea [Recovered/Resolved]
  - Dyspnoea [Recovered/Resolved]
  - Hypotension [Recovered/Resolved]
  - Presyncope [Recovered/Resolved]
  - Asthenia [Recovered/Resolved]
  - Pallor [Recovered/Resolved]
